FAERS Safety Report 9749218 (Version 1)
Quarter: 2013Q4

REPORT INFORMATION
  Report Type: Spontaneous
  Country: US (occurrence: US)
  Receive Date: 20131212
  Receipt Date: 20131212
  Transmission Date: 20140711
  Serious: No
  Sender: FDA-Public Use
  Company Number: US-INCYTE CORPORATION-2013IN002437

PATIENT
  Sex: Male

DRUGS (9)
  1. JAKAFI [Suspect]
     Indication: MYELOFIBROSIS
     Dosage: 20 MG, BID
     Route: 048
     Dates: start: 201306
  2. AMIODARONE [Concomitant]
  3. LIPITOR [Concomitant]
  4. METOPROLOL SUCC ER [Concomitant]
  5. COENZYME Q10 [Concomitant]
  6. ASPIRIN EC [Concomitant]
     Dosage: 81 MG, UNK
  7. FISH OIL [Concomitant]
  8. VITAMIN C [Concomitant]
  9. VITAMIN D [Concomitant]

REACTIONS (1)
  - Back pain [Unknown]
